FAERS Safety Report 17421138 (Version 1)
Quarter: 2020Q1

REPORT INFORMATION
  Report Type: Spontaneous
  Country: DE (occurrence: DE)
  Receive Date: 20200214
  Receipt Date: 20200214
  Transmission Date: 20200409
  Serious: Yes (Other)
  Sender: FDA-Public Use
  Company Number: DE-009507513-2002DEU005641

PATIENT
  Sex: Male

DRUGS (2)
  1. NOVAMINSULFON [Suspect]
     Active Substance: METAMIZOLE
     Route: 048
  2. KEYTRUDA [Suspect]
     Active Substance: PEMBROLIZUMAB
     Indication: ADENOCARCINOMA
     Dosage: 7 ADMINISTRATIONS

REACTIONS (4)
  - Neutropenia [Unknown]
  - Product use in unapproved indication [Unknown]
  - Malaise [Unknown]
  - White blood cell count decreased [Unknown]
